FAERS Safety Report 8775937 (Version 2)
Quarter: 2012Q4

REPORT INFORMATION
  Report Type: 
  Country: IT (occurrence: IT)
  Receive Date: 20120910
  Receipt Date: 20120920
  Transmission Date: 20130627
  Serious: Yes (Hospitalization)
  Sender: FDA-Public Use
  Company Number: IT-BRISTOL-MYERS SQUIBB COMPANY-16920969

PATIENT
  Age: 46 Year
  Sex: Male

DRUGS (3)
  1. APROVEL TABS 300 MG [Suspect]
     Indication: HYPERTENSION
     Dosage: 1DF:1Tab
     Route: 048
     Dates: start: 20120607, end: 20120715
  2. MODURETIC TABS 5MG/50MG [Suspect]
     Indication: HYPERTENSION
     Dosage: 1DF: 1Tab
     Route: 048
     Dates: start: 20120601, end: 20120713
  3. NORVASC [Concomitant]
     Indication: HYPERTENSION
     Dosage: 1DF: 10mg tab
     Route: 048
     Dates: start: 20120601

REACTIONS (4)
  - Muscle contractions involuntary [Recovering/Resolving]
  - Muscle spasms [Recovering/Resolving]
  - Hyponatraemia [Recovering/Resolving]
  - Blood creatine phosphokinase increased [Recovering/Resolving]
